FAERS Safety Report 4713533-5 (Version None)
Quarter: 2005Q3

REPORT INFORMATION
  Report Type: 
  Country: None (occurrence: None)
  Receive Date: 20050711
  Receipt Date: 20050704
  Transmission Date: 20060218
  Serious: Yes (Hospitalization)
  Sender: FDA-Public Use
  Company Number: 2005083877

PATIENT
  Age: 70 Year
  Sex: Female

DRUGS (3)
  1. LIPITOR [Suspect]
     Indication: DYSLIPIDAEMIA
     Dosage: 10 MG (10 MG, 1 IN 1 D), ORAL
     Route: 048
     Dates: start: 19990101
  2. VALSARTAN [Concomitant]
  3. PURAN 54 (LEVOTHYROXINE SODIUM) [Concomitant]

REACTIONS (2)
  - ANGINA PECTORIS [None]
  - VENOUS OCCLUSION [None]
